FAERS Safety Report 6769830-5 (Version None)
Quarter: 2010Q2

REPORT INFORMATION
  Report Type: 
  Country: None (occurrence: None)
  Receive Date: 20100615
  Receipt Date: 20100608
  Transmission Date: 20101027
  Serious: Yes (Other)
  Sender: FDA-Public Use
  Company Number: US-ASTRAZENECA-2010SE26601

PATIENT
  Sex: Female

DRUGS (3)
  1. SEROQUEL [Suspect]
     Indication: BIPOLAR DISORDER
     Route: 048
  2. BENADRYL [Suspect]
     Route: 065
  3. DEPAKOTE [Suspect]
     Route: 065

REACTIONS (1)
  - LOSS OF CONSCIOUSNESS [None]
